FAERS Safety Report 7272135-X (Version None)
Quarter: 2011Q1

REPORT INFORMATION
  Report Type: 
  Country: None (occurrence: None)
  Receive Date: 20110203
  Receipt Date: 20110124
  Transmission Date: 20110831
  Serious: Yes (Other)
  Sender: FDA-Public Use
  Company Number: US-CELGENEUS-163-21880-11012755

PATIENT
  Sex: Male
  Weight: 63.63 kg

DRUGS (12)
  1. LEXAPRO [Concomitant]
     Route: 065
  2. PRILOSEC [Concomitant]
     Route: 065
  3. KEFLEX [Concomitant]
     Route: 065
  4. DEXAMETHASONE [Concomitant]
     Route: 065
  5. KEFLEX [Concomitant]
     Route: 065
  6. CLARITIN [Concomitant]
     Route: 065
  7. VITAMIN B6 [Concomitant]
     Route: 065
  8. XANAX [Concomitant]
     Route: 065
  9. NEURONTIN [Concomitant]
     Route: 065
  10. REVLIMID [Suspect]
     Indication: MULTIPLE MYELOMA
     Route: 048
     Dates: start: 20091207
  11. PROPRANOLOL [Concomitant]
     Route: 065
  12. PROAIR HFA [Concomitant]
     Route: 055

REACTIONS (2)
  - CONTUSION [None]
  - HAEMORRHAGE [None]
